FAERS Safety Report 9019223 (Version 2)
Quarter: 2013Q1

REPORT INFORMATION
  Report Type: Report from Study
  Country: DE (occurrence: DE)
  Receive Date: 20130118
  Receipt Date: 20130325
  Transmission Date: 20140127
  Serious: Yes (Hospitalization)
  Sender: FDA-Public Use
  Company Number: DE-B.I. PHARMACEUTICALS,INC./RIDGEFIELD-2012-EU-05449EU

PATIENT
  Age: 58 None
  Sex: Female
  Weight: 85 kg

DRUGS (23)
  1. BI 1744+TIOTROPIUM BROMIDE [Suspect]
     Indication: CHRONIC OBSTRUCTIVE PULMONARY DISEASE
     Dosage: TIOTROPIUM 2.5MCG / BI 1744 5 MCG ONCE DAILY
     Route: 055
     Dates: start: 20120813, end: 20120925
  2. TIOTROPIUM BROMIDE [Suspect]
     Indication: CHRONIC OBSTRUCTIVE PULMONARY DISEASE
     Dosage: 5 MCG
     Route: 055
     Dates: start: 20121016, end: 20121204
  3. TIOTROPIUM BROMIDE [Suspect]
     Dosage: 5 MCG
     Route: 055
     Dates: start: 20121227, end: 20130111
  4. TIOTROPIUM BROMIDE [Suspect]
     Indication: CHRONIC OBSTRUCTIVE PULMONARY DISEASE
     Dosage: 5 MCG
     Route: 055
     Dates: start: 20121016, end: 20121204
  5. TIOTROPIUM BROMIDE [Suspect]
     Dosage: 5 MCG
     Route: 055
     Dates: start: 20121227, end: 20130111
  6. CARBIMAZOL [Concomitant]
     Indication: HYPERTHYROIDISM
     Dosage: 5 MG
     Route: 048
     Dates: start: 2005
  7. CITALOPRAM [Concomitant]
     Indication: DEPRESSION
     Dosage: 20 MG
     Route: 048
     Dates: start: 2001
  8. GODAMED [Concomitant]
     Indication: PERIPHERAL ARTERIAL OCCLUSIVE DISEASE
     Dosage: 100 MG
     Route: 048
     Dates: start: 20111014
  9. LAMOTRIGIN [Concomitant]
     Indication: TRANSIENT ISCHAEMIC ATTACK
     Dosage: 100 MG
     Route: 048
     Dates: start: 2004
  10. ATROVENT [Concomitant]
     Indication: CHRONIC OBSTRUCTIVE PULMONARY DISEASE
     Dosage: 120 MCG
     Route: 055
     Dates: start: 20120718
  11. FEXAFENDADIN [Concomitant]
     Indication: ECZEMA
     Dosage: 180 MCG
     Route: 048
     Dates: start: 20121016, end: 20121025
  12. SKIN CREAM (THESIT, ERYTHROMYCIN, TRIAMCIMOLONE) [Concomitant]
     Indication: ECZEMA
     Dosage: PRN
     Route: 062
     Dates: start: 20121002, end: 20121108
  13. URTIMED [Concomitant]
     Indication: ECZEMA
     Dosage: 30 MG
     Route: 048
     Dates: start: 20121026, end: 20121030
  14. RAMIPRIL [Concomitant]
     Indication: HYPERTENSION
     Dosage: 2.5 MG
     Route: 048
  15. MORONAL [Concomitant]
     Indication: PROPHYLAXIS
     Dosage: 3 MU
     Route: 048
     Dates: start: 20121030
  16. IDEOS [Concomitant]
     Indication: PROPHYLAXIS
     Dosage: 2500 MG
     Route: 048
     Dates: start: 20121030
  17. PANTOPRAZOL [Concomitant]
     Indication: PROPHYLAXIS AGAINST GASTROINTESTINAL ULCER
     Dosage: 40 MG
     Route: 048
     Dates: start: 20121030
  18. NYSTATIN [Concomitant]
     Indication: PROPHYLAXIS
     Dosage: 80 MG
     Route: 048
     Dates: start: 20121030
  19. DECORTIN [Concomitant]
     Indication: ECZEMA
     Dosage: 20 MG
     Route: 048
     Dates: start: 20121108, end: 20121113
  20. DECORTIN [Concomitant]
     Dosage: 10 MG
     Route: 048
     Dates: start: 20121114, end: 20121119
  21. DECORTIN [Concomitant]
     Dosage: 5 MG
     Route: 048
     Dates: start: 20121120
  22. ECURAL SKIN FAT CREAM [Concomitant]
     Indication: ECZEMA
     Dosage: 1 MG
     Route: 062
     Dates: start: 20121108
  23. LIDOCAINHYDROCHLORID SKIN CREAM [Concomitant]
     Indication: ECZEMA
     Dosage: 5 RT
     Route: 062
     Dates: start: 20121108

REACTIONS (3)
  - Rash [Not Recovered/Not Resolved]
  - Peripheral arterial occlusive disease [Recovered/Resolved]
  - Urinary tract infection [Recovered/Resolved]
